FAERS Safety Report 10011304 (Version 2)
Quarter: 2014Q2

REPORT INFORMATION
  Report Type: Spontaneous
  Country: US (occurrence: US)
  Receive Date: 20140314
  Receipt Date: 20140618
  Transmission Date: 20141212
  Serious: No
  Sender: FDA-Public Use
  Company Number: US-009507513-1403USA001513

PATIENT
  Age: 58 Year
  Sex: Female
  Weight: 86.17 kg

DRUGS (4)
  1. OXYTROL FOR WOMEN [Suspect]
     Indication: URINARY INCONTINENCE
     Dosage: UNK, UNKNOWN
     Route: 062
     Dates: start: 201402, end: 201402
  2. DAYPRO [Concomitant]
     Indication: FIBROMYALGIA
     Dosage: UNK, UNKNOWN
  3. NAPROXEN [Concomitant]
     Indication: FIBROMYALGIA
     Dosage: UNK, UNKNOWN
  4. TRAMADOL HYDROCHLORIDE [Concomitant]
     Indication: FIBROMYALGIA
     Dosage: UNK, UNKNOWN

REACTIONS (3)
  - Application site irritation [Unknown]
  - Application site erythema [Unknown]
  - Product quality issue [Unknown]
